FAERS Safety Report 23944173 (Version 1)
Quarter: 2024Q2

REPORT INFORMATION
  Report Type: Spontaneous
  Country: JP (occurrence: JP)
  Receive Date: 20240606
  Receipt Date: 20240606
  Transmission Date: 20240716
  Serious: Yes (Other)
  Sender: FDA-Public Use
  Company Number: JP-ALKEM LABORATORIES LIMITED-JP-ALKEM-2024-10890

PATIENT
  Sex: Female

DRUGS (9)
  1. DULOXETINE HYDROCHLORIDE [Suspect]
     Active Substance: DULOXETINE HYDROCHLORIDE
     Indication: Product used for unknown indication
     Dosage: UNK
     Route: 064
  2. DULOXETINE HYDROCHLORIDE [Suspect]
     Active Substance: DULOXETINE HYDROCHLORIDE
     Dosage: UNK
     Route: 063
  3. ZOLPIDEM [Suspect]
     Active Substance: ZOLPIDEM TARTRATE
     Indication: Product used for unknown indication
     Dosage: UNK
     Route: 064
  4. ZOLPIDEM [Suspect]
     Active Substance: ZOLPIDEM TARTRATE
     Dosage: UNK
     Route: 063
  5. VORTIOXETINE [Suspect]
     Active Substance: VORTIOXETINE
     Indication: Product used for unknown indication
     Dosage: UNK
     Route: 064
  6. VORTIOXETINE [Suspect]
     Active Substance: VORTIOXETINE
     Dosage: UNK
     Route: 063
  7. REBAMIPIDE [Suspect]
     Active Substance: REBAMIPIDE
     Indication: Product used for unknown indication
     Dosage: UNK
     Route: 064
  8. REBAMIPIDE [Suspect]
     Active Substance: REBAMIPIDE
     Dosage: UNK
     Route: 063
  9. TRIAZOLAM [Suspect]
     Active Substance: TRIAZOLAM
     Indication: Product used for unknown indication
     Dosage: UNK
     Route: 064

REACTIONS (3)
  - Neonatal asphyxia [Recovered/Resolved]
  - Foetal exposure during pregnancy [Unknown]
  - Exposure via breast milk [Unknown]
